FAERS Safety Report 4587968-8 (Version None)
Quarter: 2005Q1

REPORT INFORMATION
  Report Type: 
  Country: None (occurrence: None)
  Receive Date: 20050215
  Receipt Date: 20050201
  Transmission Date: 20050727
  Serious: Yes (Life-Threatening, Hospitalization)
  Sender: FDA-Public Use
  Company Number: GXKR2005PL00541

PATIENT
  Age: 22 Year
  Sex: Male

DRUGS (3)
  1. VERAPAMIL [Suspect]
     Indication: MEDICATION ERROR
     Dosage: 100 TABLETS (NOS)
  2. ISOSORBIDE MONONITRATE [Suspect]
     Indication: MEDICATION ERROR
  3. DILTIAZEM [Suspect]
     Indication: MEDICATION ERROR

REACTIONS (10)
  - ACUTE RESPIRATORY DISTRESS SYNDROME [None]
  - BAROTRAUMA [None]
  - EMPHYSEMA [None]
  - ILEUS PARALYTIC [None]
  - INTENTIONAL MISUSE [None]
  - PNEUMOMEDIASTINUM [None]
  - PNEUMOPERITONEUM [None]
  - PNEUMOTHORAX [None]
  - PROCEDURAL COMPLICATION [None]
  - SHOCK [None]
